FAERS Safety Report 18683658 (Version 1)
Quarter: 2020Q4

REPORT INFORMATION
  Report Type: Spontaneous
  Country: US (occurrence: US)
  Receive Date: 20201230
  Receipt Date: 20201230
  Transmission Date: 20210114
  Serious: No
  Sender: FDA-Public Use
  Company Number: US-ASTRAZENECA-2020SF64346

PATIENT
  Age: 19960 Day

DRUGS (1)
  1. BYDUREON BCISE [Suspect]
     Active Substance: EXENATIDE
     Route: 065
     Dates: start: 20201204

REACTIONS (2)
  - Fatigue [Unknown]
  - Device leakage [Unknown]

NARRATIVE: CASE EVENT DATE: 20201204
